FAERS Safety Report 10926983 (Version 1)
Quarter: 2015Q1

REPORT INFORMATION
  Report Type: Spontaneous
  Country: US (occurrence: US)
  Receive Date: 20150318
  Receipt Date: 20150318
  Transmission Date: 20150721
  Serious: No
  Sender: FDA-Public Use
  Company Number: US-ASTRAZENECA-2015SE24162

PATIENT
  Sex: Male
  Weight: 17.2 kg

DRUGS (3)
  1. NEXIUM [Suspect]
     Active Substance: ESOMEPRAZOLE MAGNESIUM
     Indication: GASTROOESOPHAGEAL REFLUX DISEASE
     Route: 064
  2. NEXIUM [Suspect]
     Active Substance: ESOMEPRAZOLE MAGNESIUM
     Indication: GASTROOESOPHAGEAL REFLUX DISEASE
     Route: 063
  3. ZANTAC [Suspect]
     Active Substance: RANITIDINE HYDROCHLORIDE
     Route: 065
     Dates: end: 201007

REACTIONS (8)
  - Gastrooesophageal reflux disease [Unknown]
  - Small for dates baby [Unknown]
  - Discomfort [Unknown]
  - Lactose intolerance [Unknown]
  - Exposure during breast feeding [Unknown]
  - Feeding disorder [Unknown]
  - Vomiting [Unknown]
  - Infantile spitting up [Unknown]
